FAERS Safety Report 12345890 (Version 1)
Quarter: 2016Q2

REPORT INFORMATION
  Report Type: Spontaneous
  Country: DE (occurrence: DE)
  Receive Date: 20160509
  Receipt Date: 20160509
  Transmission Date: 20160815
  Serious: Yes (Other)
  Sender: FDA-Public Use
  Company Number: DE-ROCHE-1720009

PATIENT
  Age: 81 Year
  Sex: Female
  Weight: 76.4 kg

DRUGS (7)
  1. PREDNISOLON [Concomitant]
     Active Substance: PREDNISOLONE
     Indication: COLLAGEN DISORDER
     Route: 048
  2. MABTHERA [Suspect]
     Active Substance: RITUXIMAB
     Indication: B-CELL LYMPHOMA
     Route: 042
     Dates: start: 20151022, end: 20151229
  3. ALLOPURINOL. [Concomitant]
     Active Substance: ALLOPURINOL
     Indication: HYPERURICAEMIA
     Route: 048
  4. PANTOZOL [Concomitant]
     Active Substance: PANTOPRAZOLE SODIUM
     Indication: GASTRITIS
     Route: 048
  5. CABERGOLINE. [Concomitant]
     Active Substance: CABERGOLINE
     Indication: RESTLESS LEGS SYNDROME
     Route: 048
  6. DALTEPARIN [Concomitant]
     Active Substance: DALTEPARIN
  7. BENDAMUSTINE [Suspect]
     Active Substance: BENDAMUSTINE
     Indication: B-CELL LYMPHOMA
     Route: 065

REACTIONS (1)
  - Leukoencephalopathy [Unknown]

NARRATIVE: CASE EVENT DATE: 201601
